FAERS Safety Report 7718958-1 (Version None)
Quarter: 2011Q3

REPORT INFORMATION
  Report Type: 
  Country: None (occurrence: None)
  Receive Date: 20110830
  Receipt Date: 20110427
  Transmission Date: 20111222
  Serious: Yes (Hospitalization)
  Sender: FDA-Public Use
  Company Number: US-GLAXOSMITHKLINE-A0925620A

PATIENT
  Age: 52 Year
  Sex: Male

DRUGS (1)
  1. AVANDIA [Suspect]
     Indication: DIABETES MELLITUS
     Dosage: 8MG PER DAY
     Route: 048
     Dates: start: 20051102, end: 20070126

REACTIONS (4)
  - CORONARY ARTERIAL STENT INSERTION [None]
  - CORONARY ANGIOPLASTY [None]
  - CORONARY ARTERY OCCLUSION [None]
  - CHEST DISCOMFORT [None]
